FAERS Safety Report 9688424 (Version 2)
Quarter: 2014Q1

REPORT INFORMATION
  Report Type: Spontaneous
  Country: DK (occurrence: GB)
  Receive Date: 20131114
  Receipt Date: 20140213
  Transmission Date: 20141002
  Serious: Yes (Other)
  Sender: FDA-Public Use
  Company Number: GB-FRI-1000051184

PATIENT
  Age: 49 Year
  Sex: Female

DRUGS (9)
  1. CITALOPRAM [Suspect]
     Indication: DEPRESSION
     Dosage: 10 MG
     Route: 048
  2. IBUPROFEN [Interacting]
     Indication: PAIN IN EXTREMITY
     Dosage: 400 MG
     Route: 048
     Dates: end: 20131029
  3. DIAZEPAM [Concomitant]
     Indication: ANXIETY
  4. PARACETAMOL [Concomitant]
  5. TEMAZEPAM [Concomitant]
     Indication: ANXIETY
  6. FEMSEVEN [Concomitant]
     Indication: HORMONE REPLACEMENT THERAPY
  7. QVAR [Concomitant]
     Indication: ASTHMA
  8. SALAMOL [Concomitant]
     Indication: ASTHMA
  9. SEREVENT [Concomitant]
     Indication: ASTHMA

REACTIONS (2)
  - Rectal haemorrhage [Recovered/Resolved]
  - Drug interaction [Unknown]
